FAERS Safety Report 6546442-X (Version None)
Quarter: 2010Q1

REPORT INFORMATION
  Report Type: 
  Country: None (occurrence: None)
  Receive Date: 20100122
  Receipt Date: 20100112
  Transmission Date: 20100710
  Serious: Yes (Hospitalization)
  Sender: FDA-Public Use
  Company Number: PHHY2010MX01824

PATIENT
  Sex: Female

DRUGS (2)
  1. TEGRETOL-XR [Suspect]
     Indication: EPILEPSY
     Dosage: 2 TABLETS (200 MG)/DAY
     Route: 048
     Dates: start: 19900301
  2. CARBOLIT [Concomitant]
     Indication: DEPRESSION
     Dosage: 300 UNK, UNK

REACTIONS (4)
  - COUGH [None]
  - HYPERSENSITIVITY [None]
  - STENT PLACEMENT [None]
  - VOMITING [None]
